FAERS Safety Report 20381414 (Version 1)
Quarter: 2022Q1

REPORT INFORMATION
  Report Type: Spontaneous
  Country: FR (occurrence: FR)
  Receive Date: 20220127
  Receipt Date: 20220127
  Transmission Date: 20220423
  Serious: Yes (Hospitalization, Other)
  Sender: FDA-Public Use
  Company Number: FR-ATLANTIDE PHARMACEUTICALS AG-2022ATL000005

PATIENT
  Age: 39 Year
  Sex: Female
  Weight: 51 kg

DRUGS (2)
  1. VENLAFAXINE [Suspect]
     Active Substance: VENLAFAXINE HYDROCHLORIDE
     Indication: Depression
     Dosage: 7.5 GRAM
     Route: 065
  2. ALPRAZOLAM [Suspect]
     Active Substance: ALPRAZOLAM
     Indication: Depression
     Dosage: 45 MILLIGRAM
     Route: 065

REACTIONS (3)
  - Hypoglycaemia [Recovered/Resolved]
  - Serotonin syndrome [Recovering/Resolving]
  - Overdose [Recovering/Resolving]
